FAERS Safety Report 16784566 (Version 1)
Quarter: 2019Q3

REPORT INFORMATION
  Report Type: Other
  Country: GB (occurrence: GB)
  Receive Date: 20190909
  Receipt Date: 20190909
  Transmission Date: 20191005
  Serious: Yes (Hospitalization, Other)
  Sender: FDA-Public Use
  Company Number: GB-ASTELLAS-2019US035268

PATIENT
  Age: 79 Year
  Sex: Female
  Weight: 54 kg

DRUGS (4)
  1. MIRABEGRON [Suspect]
     Active Substance: MIRABEGRON
     Indication: POLLAKIURIA
     Route: 048
     Dates: start: 20180610, end: 20181005
  2. ASPIRIN. [Concomitant]
     Active Substance: ASPIRIN
     Indication: PRODUCT USED FOR UNKNOWN INDICATION
     Dosage: UNK UNK, UNKNOWN FREQ.
     Route: 065
  3. GAVISCON                           /00237601/ [Concomitant]
     Active Substance: ALUMINUM HYDROXIDE\MAGNESIUM CARBONATE
     Indication: PRODUCT USED FOR UNKNOWN INDICATION
     Dosage: UNK UNK, UNKNOWN FREQ.
     Route: 065
  4. COCODAMOL [Concomitant]
     Active Substance: ACETAMINOPHEN\CODEINE PHOSPHATE
     Indication: PRODUCT USED FOR UNKNOWN INDICATION
     Dosage: UNK UNK, UNKNOWN FREQ.
     Route: 065

REACTIONS (4)
  - Myocardial infarction [Unknown]
  - Tachycardia [Recovered/Resolved with Sequelae]
  - Dyspnoea [Unknown]
  - Fatigue [Unknown]

NARRATIVE: CASE EVENT DATE: 20180914
